FAERS Safety Report 9720635 (Version 1)
Quarter: 2013Q4

REPORT INFORMATION
  Report Type: Spontaneous
  Country: US (occurrence: US)
  Receive Date: 20131129
  Receipt Date: 20131129
  Transmission Date: 20140711
  Serious: Yes (Other)
  Sender: FDA-Public Use
  Company Number: PHHY2013US135978

PATIENT
  Age: 36 Year
  Sex: Female

DRUGS (4)
  1. GILENYA [Suspect]
     Indication: MULTIPLE SCLEROSIS
     Dosage: UNK UKN, UNK
     Route: 048
     Dates: start: 20111103
  2. GILENYA [Suspect]
     Dosage: UNK UKN, UNK
     Route: 048
     Dates: start: 20111208
  3. ZOSTAVAX [Suspect]
     Dosage: UNK UKN, UNK
     Dates: start: 20111109
  4. ZOSTAVAX [Suspect]
     Dosage: UNK UKN, UNK
     Dates: start: 20130227

REACTIONS (7)
  - Herpes zoster cutaneous disseminated [Recovered/Resolved]
  - Thrombocytopenia [Recovered/Resolved]
  - Leukopenia [Recovered/Resolved]
  - CD4 lymphocyte percentage decreased [Unknown]
  - Multiple sclerosis relapse [Unknown]
  - Urinary tract infection [Unknown]
  - Influenza [Unknown]
